FAERS Safety Report 24264440 (Version 1)
Quarter: 2024Q3

REPORT INFORMATION
  Report Type: Spontaneous
  Country: CN (occurrence: CN)
  Receive Date: 20240829
  Receipt Date: 20240829
  Transmission Date: 20241016
  Serious: Yes (Hospitalization)
  Sender: GLAXOSMITHKLINE
  Company Number: CN-GLAXOSMITHKLINE-CN2024APC105148

PATIENT

DRUGS (3)
  1. LAMOTRIGINE [Suspect]
     Active Substance: LAMOTRIGINE
     Indication: Depression
     Dosage: 75 MG, BID
     Route: 048
     Dates: start: 20240607, end: 20240705
  2. QUETIAPINE [Suspect]
     Active Substance: QUETIAPINE
     Indication: Depression
     Dosage: 25 MG, QD
     Route: 048
     Dates: start: 20240607, end: 20240705
  3. SERTRALINE [Suspect]
     Active Substance: SERTRALINE HYDROCHLORIDE
     Indication: Depression
     Dosage: 25 MG, QD
     Route: 048
     Dates: start: 20240607, end: 20240705

REACTIONS (11)
  - Erythema [Recovering/Resolving]
  - Rash [Recovering/Resolving]
  - Scratch [Recovering/Resolving]
  - Rash pustular [Recovering/Resolving]
  - Lip erythema [Recovering/Resolving]
  - Mouth ulceration [Recovering/Resolving]
  - Drug eruption [Recovering/Resolving]
  - Skin lesion [Recovering/Resolving]
  - Blister [Recovering/Resolving]
  - Lip swelling [Recovering/Resolving]
  - Oral mucosal erythema [Recovering/Resolving]

NARRATIVE: CASE EVENT DATE: 20240705
